FAERS Safety Report 6695494-5 (Version None)
Quarter: 2010Q2

REPORT INFORMATION
  Report Type: 
  Country: None (occurrence: None)
  Receive Date: 20100426
  Receipt Date: 20100412
  Transmission Date: 20101027
  Serious: Yes (Hospitalization, Other)
  Sender: FDA-Public Use
  Company Number: US-ASTRAZENECA-2009SE13289

PATIENT
  Age: 20873 Day
  Sex: Female
  Weight: 72.1 kg

DRUGS (9)
  1. SEROQUEL [Suspect]
     Indication: SCHIZOAFFECTIVE DISORDER
     Route: 048
     Dates: start: 20011031
  2. PEPCID [Concomitant]
  3. PROCARDIA [Concomitant]
  4. HYDROCHLOROTHIAZIDE [Concomitant]
  5. XANAX [Concomitant]
  6. CATAPRES [Concomitant]
  7. ZOLOFT [Concomitant]
  8. GLUCOTROL [Concomitant]
     Dates: start: 20020507
  9. GLUCOPHAGE [Concomitant]
     Dates: start: 20020507

REACTIONS (2)
  - DIABETES MELLITUS [None]
  - DIABETIC NEUROPATHY [None]
